FAERS Safety Report 6368873-3 (Version None)
Quarter: 2009Q3

REPORT INFORMATION
  Report Type: 
  Country: None (occurrence: None)
  Receive Date: 20090922
  Receipt Date: 20090911
  Transmission Date: 20100115
  Serious: Yes (Other)
  Sender: FDA-Public Use
  Company Number: BR-PFIZER INC-2009267728

PATIENT
  Age: 39 Year

DRUGS (2)
  1. DEPO-PROVERA [Suspect]
     Indication: OFF LABEL USE
     Dosage: 150 MG, SINGLE
     Route: 030
     Dates: start: 20090505, end: 20090505
  2. DEPO-PROVERA [Suspect]
     Indication: MENORRHAGIA

REACTIONS (2)
  - HYPOAESTHESIA [None]
  - POLYP [None]
